FAERS Safety Report 8393385 (Version 7)
Quarter: 2012Q4

REPORT INFORMATION
  Report Type: Report from Study
  Country: JP (occurrence: JP)
  Receive Date: 20120207
  Receipt Date: 20121128
  Transmission Date: 20130627
  Serious: Yes (Other)
  Sender: FDA-Public Use
  Company Number: JP-JNJFOC-20120112849

PATIENT
  Age: 55 Year
  Sex: Male

DRUGS (14)
  1. RISPERIDONE [Suspect]
     Indication: DELUSION
     Route: 048
     Dates: start: 20111116
  2. RISPERIDONE [Suspect]
     Indication: DELUSION
     Dosage: treated 3 to 4 years before discontinuation
     Route: 048
     Dates: end: 20110912
  3. RISPERIDONE [Suspect]
     Indication: HALLUCINATION
     Dosage: treated 3 to 4 years before discontinuation
     Route: 048
     Dates: end: 20110912
  4. RISPERIDONE [Suspect]
     Indication: HALLUCINATION
     Route: 048
     Dates: start: 20111116
  5. RISPERIDONE [Suspect]
     Indication: SCHIZOPHRENIA, UNDIFFERENTIATED TYPE
     Route: 048
     Dates: start: 20111116
  6. RISPERIDONE [Suspect]
     Indication: SCHIZOPHRENIA, UNDIFFERENTIATED TYPE
     Dosage: treated 3 to 4 years before discontinuation
     Route: 048
     Dates: end: 20110912
  7. INVEGA [Suspect]
     Indication: SCHIZOPHRENIA, UNDIFFERENTIATED TYPE
     Route: 048
     Dates: start: 20110912, end: 20110925
  8. INVEGA [Suspect]
     Indication: SCHIZOPHRENIA, UNDIFFERENTIATED TYPE
     Route: 048
     Dates: start: 20110926
  9. DEPAKENE-R [Concomitant]
     Indication: SCHIZOPHRENIA
     Route: 048
  10. FLUNITRAZEPAM [Concomitant]
     Indication: SCHIZOPHRENIA, UNDIFFERENTIATED TYPE
     Route: 048
  11. TASMOLIN [Concomitant]
     Indication: PROPHYLAXIS
     Route: 048
  12. SEROQUEL [Concomitant]
     Indication: SCHIZOPHRENIA, UNDIFFERENTIATED TYPE
     Route: 048
  13. LIMAS [Concomitant]
     Indication: SCHIZOPHRENIA
     Route: 048
  14. RIVOTRIL [Concomitant]
     Indication: SCHIZOPHRENIA
     Route: 048

REACTIONS (4)
  - Hallucination [Recovering/Resolving]
  - Pneumonia aspiration [Recovered/Resolved]
  - Dysphagia [Recovered/Resolved]
  - Delusion [Recovering/Resolving]
